FAERS Safety Report 8360348-5 (Version None)
Quarter: 2012Q2

REPORT INFORMATION
  Report Type: 
  Country: None (occurrence: None)
  Receive Date: 20120515
  Receipt Date: 20120507
  Transmission Date: 20120825
  Serious: Yes (Hospitalization)
  Sender: FDA-Public Use
  Company Number: US-JNJFOC-20110100841

PATIENT
  Sex: Male
  Weight: 89 kg

DRUGS (12)
  1. TESTOSTERONE [Suspect]
     Indication: PRODUCT USED FOR UNKNOWN INDICATION
  2. SUDAFED 12 HOUR [Concomitant]
     Indication: EAR PAIN
  3. VITAMIN B-12 [Concomitant]
  4. EXTRA STRENGTH TYLENOL [Suspect]
     Indication: HEADACHE
     Dosage: INGESTED 40 PILLS IN 2 DAYS 1500MG-2000MG EVERY 3 HOURS
     Route: 048
     Dates: start: 20080401, end: 20080509
  5. PRASTERONE [Suspect]
     Indication: PRODUCT USED FOR UNKNOWN INDICATION
  6. CREATINE [Concomitant]
  7. IBUPROFEN (ADVIL) [Concomitant]
     Indication: HEADACHE
  8. BOTOX [Concomitant]
     Indication: SKIN LESION
  9. VITAMIN [Concomitant]
  10. SUDAFED 12 HOUR [Concomitant]
     Indication: HEADACHE
  11. EXTRA STRENGTH TYLENOL [Suspect]
     Indication: EAR PAIN
     Dosage: INGESTED 40 PILLS IN 2 DAYS 1500MG-2000MG EVERY 3 HOURS
     Route: 048
     Dates: start: 20080401, end: 20080509
  12. GLUTAMINE [Concomitant]

REACTIONS (15)
  - RENAL FAILURE ACUTE [None]
  - TOXICITY TO VARIOUS AGENTS [None]
  - HAEMODIALYSIS [None]
  - LIVER TRANSPLANT REJECTION [None]
  - PSEUDOMONAS INFECTION [None]
  - RHABDOMYOLYSIS [None]
  - ACCIDENTAL OVERDOSE [None]
  - ACUTE HEPATIC FAILURE [None]
  - CARDIO-RESPIRATORY ARREST [None]
  - HALLUCINATION [None]
  - HEPATIC ENCEPHALOPATHY [None]
  - LIVER TRANSPLANT [None]
  - COAGULOPATHY [None]
  - POLYCYTHAEMIA [None]
  - BRAIN OEDEMA [None]
